FAERS Safety Report 5250019-6 (Version None)
Quarter: 2007Q1

REPORT INFORMATION
  Report Type: 
  Country: None (occurrence: None)
  Receive Date: 20070228
  Receipt Date: 20060125
  Transmission Date: 20070707
  Serious: No
  Sender: FDA-Public Use
  Company Number: US-GLAXOSMITHKLINE-A0590890A

PATIENT
  Age: 40 Year
  Sex: Female

DRUGS (8)
  1. LAMICTAL [Suspect]
     Indication: BIPOLAR DISORDER
     Dosage: 100MG PER DAY
     Route: 048
     Dates: start: 20051001, end: 20060123
  2. XANAX [Concomitant]
  3. FLUOXETINE HCL [Concomitant]
  4. LITHIUM CARBONATE [Concomitant]
  5. CLONAZEPAM [Concomitant]
  6. SYNTHROID [Concomitant]
  7. SEROQUEL [Concomitant]
  8. AMBIEN [Concomitant]

REACTIONS (4)
  - DIARRHOEA [None]
  - PRURITUS [None]
  - RASH [None]
  - SENSATION OF FOREIGN BODY [None]
